FAERS Safety Report 10222416 (Version 1)
Quarter: 2014Q2

REPORT INFORMATION
  Report Type: Spontaneous
  Country: SE (occurrence: SE)
  Receive Date: 20140606
  Receipt Date: 20140606
  Transmission Date: 20141212
  Serious: Yes (Hospitalization)
  Sender: FDA-Public Use
  Company Number: SE-WATSON-2013-24984

PATIENT
  Sex: Female

DRUGS (1)
  1. TOPIRAMAT ACTAVIS [Suspect]
     Indication: MIGRAINE
     Route: 065
     Dates: start: 20121203, end: 20130614

REACTIONS (1)
  - Foot deformity [Unknown]
